FAERS Safety Report 8014935-4 (Version None)
Quarter: 2011Q4

REPORT INFORMATION
  Report Type: 
  Country: None (occurrence: None)
  Receive Date: 20111229
  Receipt Date: 20111219
  Transmission Date: 20120403
  Serious: Yes (Other)
  Sender: FDA-Public Use
  Company Number: FR-ROCHE-1024173

PATIENT
  Sex: Female
  Weight: 56 kg

DRUGS (9)
  1. CARMUSTINE [Suspect]
     Indication: MANTLE CELL LYMPHOMA
     Route: 042
     Dates: start: 20111116, end: 20111116
  2. NEXIUM [Concomitant]
     Route: 048
  3. MELPHALAN HYDROCHLORIDE [Suspect]
     Indication: MANTLE CELL LYMPHOMA
     Route: 042
     Dates: start: 20111121, end: 20111121
  4. MABTHERA [Suspect]
     Indication: MANTLE CELL LYMPHOMA
     Route: 042
     Dates: start: 20111115, end: 20111115
  5. ETOPOSIDE [Suspect]
     Indication: MANTLE CELL LYMPHOMA
     Route: 042
     Dates: start: 20111117, end: 20111120
  6. FLUTICASONE PROPIONATE/SALMETEROL [Concomitant]
     Dosage: SUSPENSION FOR INHALATION, DOSAGE UNSPECIFED
  7. ZOVIRAX [Concomitant]
     Route: 048
  8. CYTARABINE [Suspect]
     Indication: MANTLE CELL LYMPHOMA
     Route: 042
     Dates: start: 20111117, end: 20111120
  9. BACTRIM [Concomitant]
     Dosage: 3 DOSE FROMS PER WEEK
     Route: 048

REACTIONS (3)
  - BACTERAEMIA [None]
  - BRONCHOPULMONARY ASPERGILLOSIS [None]
  - BONE MARROW FAILURE [None]
